FAERS Safety Report 8286649-7 (Version None)
Quarter: 2012Q2

REPORT INFORMATION
  Report Type: 
  Country: None (occurrence: None)
  Receive Date: 20120416
  Receipt Date: 20120409
  Transmission Date: 20120825
  Serious: Yes (Other)
  Sender: FDA-Public Use
  Company Number: US-SHIRE-ALL1-2012-00965

PATIENT
  Sex: Male
  Weight: 58.05 kg

DRUGS (4)
  1. ADDERALL XR 10 [Suspect]
     Indication: ATTENTION DEFICIT/HYPERACTIVITY DISORDER
     Dosage: 30 MG, 1X/DAY:QD
     Route: 048
     Dates: start: 20091020, end: 20120315
  2. ADDERALL XR 10 [Suspect]
     Dosage: 20 MG, 1X/DAY:QD
     Route: 048
  3. CLONIDINE [Suspect]
     Indication: ATTENTION DEFICIT/HYPERACTIVITY DISORDER
     Dosage: 0.1 MG, 2X/DAY:BID
     Route: 065
     Dates: start: 20110419, end: 20120315
  4. CLONIDINE [Suspect]
     Dosage: 0.1 MG, 1X/DAY:QD
     Route: 065

REACTIONS (1)
  - AMAUROSIS FUGAX [None]
